FAERS Safety Report 4709502-1 (Version None)
Quarter: 2005Q3

REPORT INFORMATION
  Report Type: 
  Country: None (occurrence: None)
  Receive Date: 20050706
  Receipt Date: 20050624
  Transmission Date: 20060218
  Serious: Yes (Hospitalization)
  Sender: FDA-Public Use
  Company Number: 2005093249

PATIENT
  Age: 41 Year
  Sex: Female

DRUGS (4)
  1. ZOLOFT [Suspect]
     Indication: DEPRESSION
     Dosage: 100 MG, ORAL
     Route: 048
  2. LISINOPRIL [Concomitant]
  3. CLONIDINE [Concomitant]
  4. REMERGIL (MIRTAZAPINE) [Concomitant]

REACTIONS (6)
  - BLOOD URINE [None]
  - EPISTAXIS [None]
  - HAEMORRHAGE [None]
  - HAEMORRHAGIC DIATHESIS [None]
  - POST PROCEDURAL HAEMATOMA [None]
  - SCAR [None]
